FAERS Safety Report 5912487-3 (Version None)
Quarter: 2008Q4

REPORT INFORMATION
  Report Type: 
  Country: None (occurrence: None)
  Receive Date: 20081007
  Receipt Date: 20081007
  Transmission Date: 20090506
  Serious: Yes (Other)
  Sender: FDA-Public Use
  Company Number: None

PATIENT
  Age: 23 Year
  Sex: Female
  Weight: 56.6996 kg

DRUGS (1)
  1. YAZ [Suspect]
     Indication: CONTRACEPTION
     Dosage: 3MG; 0.02MG DAILY PO
     Route: 048
     Dates: start: 20060401, end: 20080531

REACTIONS (14)
  - ALOPECIA [None]
  - ANXIETY [None]
  - BLOOD CORTISOL DECREASED [None]
  - CONTACT LENS INTOLERANCE [None]
  - EPHELIDES [None]
  - FATIGUE [None]
  - INSOMNIA [None]
  - MOOD ALTERED [None]
  - NAUSEA [None]
  - OEDEMA [None]
  - PROGESTERONE DECREASED [None]
  - TINNITUS [None]
  - URINARY TRACT INFECTION [None]
  - WEIGHT INCREASED [None]
